FAERS Safety Report 4707628-X (Version None)
Quarter: 2005Q3

REPORT INFORMATION
  Report Type: 
  Country: None (occurrence: None)
  Receive Date: 20050705
  Receipt Date: 20050615
  Transmission Date: 20060218
  Serious: Yes (Hospitalization)
  Sender: FDA-Public Use
  Company Number: 2005-BP-10455RO

PATIENT
  Age: 40 Year
  Sex: Male

DRUGS (2)
  1. MIRTAZAPINE [Suspect]
     Dosage: 1.8 GM X 1 DOSE PO
     Route: 048
  2. ALCOHOL (ETHANOL) [Suspect]
     Dosage: 2 LITERS OF WINE PO
     Route: 048

REACTIONS (18)
  - ALCOHOL USE [None]
  - BLOOD ALBUMIN INCREASED [None]
  - CONTUSION [None]
  - DEHYDRATION [None]
  - DIZZINESS [None]
  - HEADACHE [None]
  - HEPATITIS [None]
  - HEPATOMEGALY [None]
  - INTENTION TREMOR [None]
  - LIVER TENDERNESS [None]
  - NAUSEA [None]
  - NEUTROPHILIA [None]
  - OVERDOSE [None]
  - RHABDOMYOLYSIS [None]
  - SINUS TACHYCARDIA [None]
  - TREMOR [None]
  - VISION BLURRED [None]
  - WHEEZING [None]
